FAERS Safety Report 6733011-1 (Version None)
Quarter: 2010Q2

REPORT INFORMATION
  Report Type: 
  Country: None (occurrence: None)
  Receive Date: 20100514
  Receipt Date: 20100426
  Transmission Date: 20101027
  Serious: No
  Sender: FDA-Public Use
  Company Number: 1000011579

PATIENT
  Age: 53 Year
  Sex: Male

DRUGS (5)
  1. ESCITALOPRAM [Suspect]
     Dates: start: 20070101
  2. PROTEDINE [Concomitant]
  3. SELOMAX [Concomitant]
  4. LOSAR [Concomitant]
  5. NEUROBION [Concomitant]

REACTIONS (4)
  - AMNESIA [None]
  - HYPERTENSION [None]
  - TREMOR [None]
  - ULCER [None]
